FAERS Safety Report 5340345-4 (Version None)
Quarter: 2007Q2

REPORT INFORMATION
  Report Type: 
  Country: None (occurrence: None)
  Receive Date: 20070405
  Receipt Date: 20070119
  Transmission Date: 20071010
  Serious: No
  Sender: FDA-Public Use
  Company Number: US200701003801

PATIENT
  Age: 21 Year
  Sex: Female

DRUGS (2)
  1. CYMBALTA [Suspect]
     Indication: DEPRESSION
     Dosage: 60 MG, DAILY (1/D)
     Dates: start: 20061201, end: 20070116
  2. EFFEXOR [Concomitant]

REACTIONS (4)
  - DEPERSONALISATION [None]
  - MORBID THOUGHTS [None]
  - NIGHTMARE [None]
  - SUICIDAL IDEATION [None]
